FAERS Safety Report 9315071 (Version 1)
Quarter: 2013Q2

REPORT INFORMATION
  Report Type: Spontaneous
  Country: IT (occurrence: IT)
  Receive Date: 20130529
  Receipt Date: 20130529
  Transmission Date: 20140414
  Serious: Yes (Hospitalization)
  Sender: FDA-Public Use
  Company Number: IT-TEVA-407289ISR

PATIENT
  Age: 9 Year
  Sex: Male

DRUGS (1)
  1. CEFTRIAZONE RATIOPHARM [Suspect]
     Indication: BRONCHOPNEUMONIA
     Dosage: 1 GRAM DAILY;
     Route: 030
     Dates: start: 20130508, end: 20130508

REACTIONS (2)
  - Presyncope [Recovered/Resolved]
  - Urticaria [Recovered/Resolved]
